FAERS Safety Report 18940640 (Version 1)
Quarter: 2021Q1

REPORT INFORMATION
  Report Type: Spontaneous
  Country: US (occurrence: US)
  Receive Date: 20210224
  Receipt Date: 20210224
  Transmission Date: 20210420
  Serious: Yes (Death, Hospitalization)
  Sender: FDA-Public Use
  Company Number: None

PATIENT
  Age: 68 Year
  Sex: Female

DRUGS (1)
  1. OFEV [Suspect]
     Active Substance: NINTEDANIB
     Indication: IDIOPATHIC PULMONARY FIBROSIS
     Route: 048
     Dates: start: 20201203, end: 20210220

REACTIONS (4)
  - Acute respiratory failure [None]
  - Pneumonia [None]
  - Pulmonary fibrosis [None]
  - Disease progression [None]

NARRATIVE: CASE EVENT DATE: 20210220
